FAERS Safety Report 24233048 (Version 2)
Quarter: 2024Q3

REPORT INFORMATION
  Report Type: Spontaneous
  Country: US (occurrence: US)
  Receive Date: 20240821
  Receipt Date: 20240823
  Transmission Date: 20241017
  Serious: Yes (Other)
  Sender: PFIZER
  Company Number: US-PFIZER INC-202400240179

PATIENT
  Age: 65 Year
  Sex: Female

DRUGS (1)
  1. XELJANZ [Suspect]
     Active Substance: TOFACITINIB CITRATE
     Indication: Alopecia
     Dosage: (1MG/ML TOFACITINIB ORAL SOLUTION)/APPLY TO SCALP AFFECTED AREAS ONCE A DAY

REACTIONS (2)
  - Autoimmune disorder [Unknown]
  - Off label use [Unknown]
